FAERS Safety Report 23433751 (Version 1)
Quarter: 2024Q1

REPORT INFORMATION
  Report Type: Spontaneous
  Country: US (occurrence: None)
  Receive Date: 20240123
  Receipt Date: 20240123
  Transmission Date: 20240410
  Serious: No
  Sender: FDA-Public Use
  Company Number: None

PATIENT
  Sex: Male

DRUGS (1)
  1. RINVOQ [Suspect]
     Active Substance: UPADACITINIB
     Indication: Colitis ulcerative
     Dosage: 45MG DAILY PO
     Route: 048
     Dates: start: 202309

REACTIONS (5)
  - Pancreatitis [None]
  - Colitis ulcerative [None]
  - Disease complication [None]
  - Therapeutic product effect incomplete [None]
  - Treatment failure [None]
